FAERS Safety Report 4563077-9 (Version None)
Quarter: 2005Q1

REPORT INFORMATION
  Report Type: 
  Country: None (occurrence: None)
  Receive Date: 20050125
  Receipt Date: 20050117
  Transmission Date: 20050727
  Serious: No
  Sender: FDA-Public Use
  Company Number: 2005-124439-NL

PATIENT
  Age: 58 Year
  Sex: Female

DRUGS (3)
  1. MIRTAZAPINE [Suspect]
     Indication: CONVERSION DISORDER
     Dosage: 30 MG; ORAL
     Route: 048
     Dates: end: 20041013
  2. BENDROPLUZIDE [Concomitant]
  3. CANDESARTAN [Concomitant]

REACTIONS (1)
  - HEPATITIS [None]
